FAERS Safety Report 12545919 (Version 3)
Quarter: 2016Q4

REPORT INFORMATION
  Report Type: Spontaneous
  Country: US (occurrence: US)
  Receive Date: 20160711
  Receipt Date: 20161111
  Transmission Date: 20170207
  Serious: Yes (Other)
  Sender: FDA-Public Use
  Company Number: US-JNJFOC-20160615736

PATIENT
  Age: 23 Year
  Sex: Male

DRUGS (40)
  1. RISPERDAL [Suspect]
     Active Substance: RISPERIDONE
     Indication: AGITATION
     Route: 048
     Dates: start: 2006, end: 2006
  2. RISPERDAL [Suspect]
     Active Substance: RISPERIDONE
     Indication: AGITATION
     Route: 048
     Dates: start: 2004
  3. DEPAKOTE [Suspect]
     Active Substance: DIVALPROEX SODIUM
     Indication: DISSOCIATIVE IDENTITY DISORDER
     Route: 065
     Dates: end: 2006
  4. LITHIUM. [Suspect]
     Active Substance: LITHIUM
     Indication: BIPOLAR DISORDER
     Route: 065
     Dates: end: 2006
  5. RISPERDAL [Suspect]
     Active Substance: RISPERIDONE
     Indication: ANXIETY
     Route: 048
     Dates: start: 1998, end: 1999
  6. RISPERDAL [Suspect]
     Active Substance: RISPERIDONE
     Indication: INSOMNIA
     Route: 048
     Dates: start: 2006, end: 2006
  7. RISPERDAL [Suspect]
     Active Substance: RISPERIDONE
     Indication: ANXIETY
     Route: 048
     Dates: start: 1997
  8. RISPERDAL [Suspect]
     Active Substance: RISPERIDONE
     Indication: ANXIETY
     Route: 048
     Dates: start: 2006, end: 2006
  9. RISPERDAL [Suspect]
     Active Substance: RISPERIDONE
     Indication: AGITATION
     Route: 048
     Dates: start: 1998, end: 1999
  10. RISPERDAL [Suspect]
     Active Substance: RISPERIDONE
     Indication: BIPOLAR DISORDER
     Dosage: IN VARYING DOSES OF 3 MG TO 4 MG
     Route: 048
     Dates: start: 2002
  11. MARIJUANA [Suspect]
     Active Substance: CANNABIS SATIVA SUBSP. INDICA TOP
     Indication: PRODUCT USED FOR UNKNOWN INDICATION
     Route: 065
  12. RISPERDAL [Suspect]
     Active Substance: RISPERIDONE
     Indication: ANXIETY
     Dosage: IN VARYING DOSES OF 3 MG TO 4 MG
     Route: 048
     Dates: start: 2002
  13. RISPERDAL [Suspect]
     Active Substance: RISPERIDONE
     Indication: BIPOLAR DISORDER
     Route: 048
     Dates: start: 2006, end: 2006
  14. RISPERDAL [Suspect]
     Active Substance: RISPERIDONE
     Indication: BIPOLAR DISORDER
     Route: 048
     Dates: start: 2004
  15. LITHIUM. [Suspect]
     Active Substance: LITHIUM
     Indication: DISSOCIATIVE IDENTITY DISORDER
     Route: 065
     Dates: end: 2006
  16. ZYPREXA [Suspect]
     Active Substance: OLANZAPINE
     Indication: SCHIZOID PERSONALITY DISORDER
     Route: 065
     Dates: end: 2006
  17. RISPERDAL [Suspect]
     Active Substance: RISPERIDONE
     Indication: ANXIETY
     Route: 048
     Dates: start: 1996
  18. RISPERDAL [Suspect]
     Active Substance: RISPERIDONE
     Indication: INSOMNIA
     Route: 048
     Dates: start: 1998, end: 1999
  19. RISPERDAL [Suspect]
     Active Substance: RISPERIDONE
     Indication: AGITATION
     Route: 048
     Dates: start: 1996
  20. RISPERDAL [Suspect]
     Active Substance: RISPERIDONE
     Indication: AGITATION
     Dosage: IN VARYING DOSES OF 3 MG TO 4 MG
     Route: 048
     Dates: start: 2002
  21. RISPERDAL [Suspect]
     Active Substance: RISPERIDONE
     Indication: DISSOCIATIVE IDENTITY DISORDER
     Route: 048
     Dates: start: 1996
  22. RISPERDAL [Suspect]
     Active Substance: RISPERIDONE
     Indication: DISSOCIATIVE IDENTITY DISORDER
     Dosage: IN VARYING DOSES OF 3 MG TO 4 MG
     Route: 048
     Dates: start: 2002
  23. RISPERDAL [Suspect]
     Active Substance: RISPERIDONE
     Indication: DISSOCIATIVE IDENTITY DISORDER
     Route: 048
     Dates: start: 2006, end: 2006
  24. RISPERDAL [Suspect]
     Active Substance: RISPERIDONE
     Indication: BIPOLAR DISORDER
     Route: 048
     Dates: start: 1998, end: 1999
  25. ZYPREXA [Suspect]
     Active Substance: OLANZAPINE
     Indication: BIPOLAR DISORDER
     Route: 065
     Dates: end: 2006
  26. RISPERDAL [Suspect]
     Active Substance: RISPERIDONE
     Indication: INSOMNIA
     Route: 048
     Dates: start: 1996
  27. RISPERDAL [Suspect]
     Active Substance: RISPERIDONE
     Indication: INSOMNIA
     Route: 048
     Dates: start: 1997
  28. RISPERDAL [Suspect]
     Active Substance: RISPERIDONE
     Indication: INSOMNIA
     Route: 048
     Dates: start: 2004
  29. RISPERDAL [Suspect]
     Active Substance: RISPERIDONE
     Indication: DISSOCIATIVE IDENTITY DISORDER
     Route: 048
     Dates: start: 1997
  30. DEPAKOTE [Suspect]
     Active Substance: DIVALPROEX SODIUM
     Indication: BIPOLAR DISORDER
     Route: 065
     Dates: end: 2006
  31. RISPERDAL [Suspect]
     Active Substance: RISPERIDONE
     Indication: AGITATION
     Route: 048
     Dates: start: 1997
  32. RISPERDAL [Suspect]
     Active Substance: RISPERIDONE
     Indication: DISSOCIATIVE IDENTITY DISORDER
     Route: 048
     Dates: start: 1998, end: 1999
  33. RISPERDAL [Suspect]
     Active Substance: RISPERIDONE
     Indication: BIPOLAR DISORDER
     Route: 048
     Dates: start: 1997
  34. RISPERDAL [Suspect]
     Active Substance: RISPERIDONE
     Indication: BIPOLAR DISORDER
     Route: 048
     Dates: start: 1996
  35. LITHIUM. [Suspect]
     Active Substance: LITHIUM
     Indication: SCHIZOID PERSONALITY DISORDER
     Route: 065
     Dates: end: 2006
  36. ZYPREXA [Suspect]
     Active Substance: OLANZAPINE
     Indication: DISSOCIATIVE IDENTITY DISORDER
     Route: 065
     Dates: end: 2006
  37. RISPERDAL [Suspect]
     Active Substance: RISPERIDONE
     Indication: ANXIETY
     Route: 048
     Dates: start: 2004
  38. RISPERDAL [Suspect]
     Active Substance: RISPERIDONE
     Indication: INSOMNIA
     Dosage: IN VARYING DOSES OF 3 MG TO 4 MG
     Route: 048
     Dates: start: 2002
  39. RISPERDAL [Suspect]
     Active Substance: RISPERIDONE
     Indication: DISSOCIATIVE IDENTITY DISORDER
     Route: 048
     Dates: start: 2004
  40. DEPAKOTE [Suspect]
     Active Substance: DIVALPROEX SODIUM
     Indication: SCHIZOID PERSONALITY DISORDER
     Route: 065
     Dates: end: 2006

REACTIONS (3)
  - Gynaecomastia [Not Recovered/Not Resolved]
  - Abnormal weight gain [Unknown]
  - Sedation [Unknown]

NARRATIVE: CASE EVENT DATE: 20040909
